FAERS Safety Report 7571549-8 (Version None)
Quarter: 2011Q2

REPORT INFORMATION
  Report Type: 
  Country: None (occurrence: None)
  Receive Date: 20110624
  Receipt Date: 20110615
  Transmission Date: 20111010
  Serious: Yes (Life-Threatening)
  Sender: FDA-Public Use
  Company Number: JP-ASTRAZENECA-2011SE37386

PATIENT
  Age: 86 Year
  Sex: Female

DRUGS (4)
  1. CANDESARTAN CILEXETIL [Suspect]
     Indication: HYPERTENSION
     Route: 048
     Dates: start: 20110528, end: 20110604
  2. CANDESARTAN CILEXETIL [Suspect]
     Dosage: 2 MG
     Route: 048
     Dates: start: 20110605
  3. ADALAT CC [Concomitant]
     Route: 048
     Dates: start: 20110528
  4. CARVEDILOL [Concomitant]
     Route: 048
     Dates: start: 20110528

REACTIONS (1)
  - LOSS OF CONSCIOUSNESS [None]
